FAERS Safety Report 9053808 (Version 1)
Quarter: 2013Q1

REPORT INFORMATION
  Report Type: Spontaneous
  Country: US (occurrence: US)
  Receive Date: 20130207
  Receipt Date: 20130207
  Transmission Date: 20140127
  Serious: Yes (Other)
  Sender: FDA-Public Use
  Company Number: US-GLAXOSMITHKLINE-A1010413A

PATIENT
  Age: 84 Year
  Sex: Male

DRUGS (1)
  1. REQUIP XL [Suspect]
     Indication: PARKINSON^S DISEASE
     Route: 048
     Dates: start: 200812

REACTIONS (2)
  - Choking [Not Recovered/Not Resolved]
  - Disease progression [Unknown]
